FAERS Safety Report 16776475 (Version 1)
Quarter: 2019Q3

REPORT INFORMATION
  Report Type: Spontaneous
  Country: US (occurrence: US)
  Receive Date: 20190905
  Receipt Date: 20190905
  Transmission Date: 20191005
  Serious: Yes (Hospitalization)
  Sender: FDA-Public Use
  Company Number: US-ELI_LILLY_AND_COMPANY-US201908014013

PATIENT
  Sex: Female

DRUGS (1)
  1. HUMALOG [Suspect]
     Active Substance: INSULIN LISPRO
     Indication: TYPE 1 DIABETES MELLITUS
     Dosage: 60 U, PRN (MAX OF AROUND 50-60 UNITS PER DAY, BOTH AT A BASAL RATE AND A SLIDING SCALE BOLUS RATE)
     Route: 058

REACTIONS (4)
  - Malaise [Recovered/Resolved]
  - Blood glucose abnormal [Recovered/Resolved]
  - Immune system disorder [Recovered/Resolved]
  - Influenza [Recovered/Resolved]
